FAERS Safety Report 7151331-6 (Version None)
Quarter: 2010Q4

REPORT INFORMATION
  Report Type: 
  Country: None (occurrence: None)
  Receive Date: 20101210
  Receipt Date: 20101201
  Transmission Date: 20110411
  Serious: Yes (Hospitalization)
  Sender: FDA-Public Use
  Company Number: JP-B.I. PHARMACEUTICALS,INC./RIDGEFIELD-2010-DE-06563GD

PATIENT
  Age: 83 Year
  Sex: Female

DRUGS (8)
  1. MELOXICAM [Suspect]
     Route: 048
  2. LANSOPRAZOLE [Suspect]
     Route: 048
  3. CEREGASRON [Concomitant]
  4. DIOVAN [Concomitant]
  5. AMLODIPINE [Concomitant]
  6. FOSMICIN [Concomitant]
  7. ENTERONON R [Concomitant]
  8. HANGESHIN-TO [Concomitant]

REACTIONS (7)
  - ADENOCARCINOMA [None]
  - COLITIS COLLAGENOUS [None]
  - COLON CANCER [None]
  - DIARRHOEA [None]
  - ENTERITIS [None]
  - ISCHAEMIA [None]
  - LARGE INTESTINAL ULCER [None]
